FAERS Safety Report 13804574 (Version 1)
Quarter: 2017Q3

REPORT INFORMATION
  Report Type: Report from Study
  Country: None (occurrence: DE)
  Receive Date: 20170728
  Receipt Date: 20170728
  Transmission Date: 20171127
  Serious: Yes (Hospitalization)
  Sender: FDA-Public Use
  Company Number: DE-ABBVIE-17K-062-2052678-00

PATIENT
  Age: 71 Year
  Sex: Female

DRUGS (7)
  1. ORENCIA [Concomitant]
     Active Substance: ABATACEPT
     Dates: start: 201606
  2. ORENCIA [Concomitant]
     Active Substance: ABATACEPT
     Indication: PRODUCT USED FOR UNKNOWN INDICATION
     Dates: start: 201604
  3. AZATHIOPRINE. [Suspect]
     Active Substance: AZATHIOPRINE
     Indication: PRODUCT USED FOR UNKNOWN INDICATION
     Route: 065
     Dates: end: 201111
  4. AZATHIOPRINE. [Suspect]
     Active Substance: AZATHIOPRINE
     Route: 065
     Dates: start: 201112
  5. HUMIRA [Suspect]
     Active Substance: ADALIMUMAB
     Indication: RHEUMATIC DISORDER
     Route: 058
     Dates: start: 201206, end: 201302
  6. ENBREL [Concomitant]
     Active Substance: ETANERCEPT
     Indication: PRODUCT USED FOR UNKNOWN INDICATION
     Dates: start: 200512, end: 201012
  7. ENBREL [Concomitant]
     Active Substance: ETANERCEPT
     Dates: start: 201508, end: 201509

REACTIONS (6)
  - Rheumatoid arthritis [Unknown]
  - Contusion [Unknown]
  - Infective exacerbation of chronic obstructive airways disease [Unknown]
  - Fall [Unknown]
  - Right ventricular failure [Unknown]
  - Cor pulmonale [Unknown]

NARRATIVE: CASE EVENT DATE: 20160315
